FAERS Safety Report 4851047-2 (Version None)
Quarter: 2005Q4

REPORT INFORMATION
  Report Type: 
  Country: None (occurrence: None)
  Receive Date: 20051130
  Receipt Date: 20050912
  Transmission Date: 20060501
  Serious: No
  Sender: FDA-Public Use
  Company Number: FABR-11237

PATIENT
  Age: 22 Year
  Sex: Male
  Weight: 68.6 kg

DRUGS (6)
  1. FABRAZYME [Suspect]
     Indication: FABRY'S DISEASE
     Dosage: 70 MG Q2WKS IV
     Route: 042
     Dates: start: 20050711
  2. VALIUM [Concomitant]
  3. DILANTIN [Concomitant]
  4. MARIJUANA [Concomitant]
  5. BENADRYL [Concomitant]
  6. ACETAMINOPHEN [Concomitant]

REACTIONS (5)
  - ABDOMINAL PAIN [None]
  - ANXIETY [None]
  - NAUSEA [None]
  - SYNCOPE [None]
  - URTICARIA [None]
